FAERS Safety Report 4816025-8 (Version None)
Quarter: 2005Q4

REPORT INFORMATION
  Report Type: 
  Country: None (occurrence: None)
  Receive Date: 20051026
  Receipt Date: 20051017
  Transmission Date: 20060501
  Serious: Yes (Hospitalization, Disabling, Other)
  Sender: FDA-Public Use
  Company Number: 2005135352

PATIENT
  Age: 56 Year
  Sex: Female
  Weight: 53.978 kg

DRUGS (17)
  1. NEURONTIN [Suspect]
     Indication: FACIAL PAIN
     Dosage: 400 MG, ORAL
     Route: 048
  2. GABAPENTIN [Suspect]
     Indication: FACIAL PAIN
     Dosage: 400 MG, ORAL
     Route: 048
     Dates: start: 20050101
  3. ALPRAZOLAM [Concomitant]
  4. ALBUTEROL SULFATE/IPRATROPIUM BROMIDE (IPRATROPIUM BROMIDE, SALBUTAMOL [Concomitant]
  5. ALBUTEROL [Concomitant]
  6. ADVAIR DISKUS 100/50 [Concomitant]
  7. PROTONIX [Concomitant]
  8. TEGRETOL TEGRETOL (CARBAMAZEPINE) [Concomitant]
  9. DILANTIN (PHENYTON SODIUM) [Concomitant]
  10. CLARINEX [Concomitant]
  11. TOPROL (METOPROLOL) [Concomitant]
  12. ELAVIL [Concomitant]
  13. TESSALON [Concomitant]
  14. AMBIEN [Concomitant]
  15. ZOLOFT [Concomitant]
  16. THEOPHYLLINE [Concomitant]
  17. VICODIN [Concomitant]

REACTIONS (10)
  - ASTHMA [None]
  - CHRONIC OBSTRUCTIVE PULMONARY DISEASE [None]
  - DIPLOPIA [None]
  - DIZZINESS [None]
  - DRUG INEFFECTIVE [None]
  - MEMORY IMPAIRMENT [None]
  - PAROSMIA [None]
  - PHARMACEUTICAL PRODUCT COMPLAINT [None]
  - SUICIDAL IDEATION [None]
  - WEIGHT INCREASED [None]
